FAERS Safety Report 20621184 (Version 1)
Quarter: 2022Q1

REPORT INFORMATION
  Report Type: Other
  Country: None (occurrence: US)
  Receive Date: 20220322
  Receipt Date: 20220322
  Transmission Date: 20220424
  Serious: No
  Sender: FDA-Public Use
  Company Number: US-Ascent Pharmaceuticals, Inc.-2127006

PATIENT

DRUGS (1)
  1. METHYLPHENIDATE HYDROCHLORIDE [Suspect]
     Active Substance: METHYLPHENIDATE HYDROCHLORIDE
     Indication: Product used for unknown indication
     Route: 065

REACTIONS (14)
  - Abdominal discomfort [Unknown]
  - Anal incontinence [Unknown]
  - Abdominal distension [Unknown]
  - Headache [Unknown]
  - Palpitations [Unknown]
  - Chest pain [Unknown]
  - Renal pain [Unknown]
  - Nausea [Unknown]
  - Vision blurred [Unknown]
  - Dehydration [Unknown]
  - Abdominal pain upper [Unknown]
  - Asthenia [Unknown]
  - Confusional state [Unknown]
  - Product substitution issue [Unknown]
